FAERS Safety Report 13822152 (Version 1)
Quarter: 2017Q3

REPORT INFORMATION
  Report Type: Spontaneous
  Country: US (occurrence: US)
  Receive Date: 20170801
  Receipt Date: 20170801
  Transmission Date: 20171127
  Serious: Yes (Life-Threatening, Disabling, Other)
  Sender: FDA-Public Use
  Company Number: None

PATIENT
  Sex: Female
  Weight: 75.36 kg

DRUGS (33)
  1. OPANA [Suspect]
     Active Substance: OXYMORPHONE HYDROCHLORIDE
     Indication: BACK PAIN
     Dosage: 20MG + 30MG 2X DAILY 1 EVERY 12 HRS. ORALLY
     Route: 048
  2. HYDROCODONE BITARTRATE AND ACETAMINOPHEN [Concomitant]
     Active Substance: ACETAMINOPHEN\HYDROCODONE BITARTRATE
  3. FLONASE [Concomitant]
     Active Substance: FLUTICASONE PROPIONATE
  4. OPANA [Suspect]
     Active Substance: OXYMORPHONE HYDROCHLORIDE
     Indication: INTERVERTEBRAL DISC PROTRUSION
     Dosage: 20MG + 30MG 2X DAILY 1 EVERY 12 HRS. ORALLY
     Route: 048
  5. CERTIZINE [Concomitant]
  6. CLONAZEPAM. [Concomitant]
     Active Substance: CLONAZEPAM
  7. OPANA [Suspect]
     Active Substance: OXYMORPHONE HYDROCHLORIDE
     Indication: INTERVERTEBRAL DISC DEGENERATION
     Dosage: 20MG + 30MG 2X DAILY 1 EVERY 12 HRS. ORALLY
     Route: 048
  8. BENTYL [Concomitant]
     Active Substance: DICYCLOMINE HYDROCHLORIDE
  9. PROMETHAZINE [Concomitant]
     Active Substance: PROMETHAZINE\PROMETHAZINE HYDROCHLORIDE
  10. OPANA [Suspect]
     Active Substance: OXYMORPHONE HYDROCHLORIDE
     Indication: LIGAMENT DISORDER
     Dosage: 20MG + 30MG 2X DAILY 1 EVERY 12 HRS. ORALLY
     Route: 048
  11. OPANA [Suspect]
     Active Substance: OXYMORPHONE HYDROCHLORIDE
     Indication: INTERVERTEBRAL DISC COMPRESSION
     Dosage: 20MG + 30MG 2X DAILY 1 EVERY 12 HRS. ORALLY
     Route: 048
  12. OPANA [Suspect]
     Active Substance: OXYMORPHONE HYDROCHLORIDE
     Indication: INTERVERTEBRAL DISC COMPRESSION
     Dosage: 20MG + 30MG 2X DAILY 1 EVERY 12 HRS. ORALLY
     Route: 048
  13. OPANA [Suspect]
     Active Substance: OXYMORPHONE HYDROCHLORIDE
     Indication: SCOLIOSIS
     Dosage: 20MG + 30MG 2X DAILY 1 EVERY 12 HRS. ORALLY
     Route: 048
  14. LOMOTIL [Concomitant]
     Active Substance: ATROPINE SULFATE\DIPHENOXYLATE HYDROCHLORIDE
  15. SAPHRIS [Concomitant]
     Active Substance: ASENAPINE MALEATE
  16. VOLTAREN [Concomitant]
     Active Substance: DICLOFENAC SODIUM
  17. ATORVASTATIN [Concomitant]
     Active Substance: ATORVASTATIN
  18. OPANA [Suspect]
     Active Substance: OXYMORPHONE HYDROCHLORIDE
     Indication: LIGAMENT DISORDER
     Dosage: 20MG + 30MG 2X DAILY 1 EVERY 12 HRS. ORALLY
     Route: 048
  19. LISINOPRIL. [Concomitant]
     Active Substance: LISINOPRIL
  20. CALCIUM [Concomitant]
     Active Substance: CALCIUM
  21. BAYER LOW DOSE [Concomitant]
     Active Substance: ASPIRIN
  22. OPANA [Suspect]
     Active Substance: OXYMORPHONE HYDROCHLORIDE
     Indication: BACK PAIN
     Dosage: 20MG + 30MG 2X DAILY 1 EVERY 12 HRS. ORALLY
     Route: 048
  23. OPANA [Suspect]
     Active Substance: OXYMORPHONE HYDROCHLORIDE
     Indication: INTERVERTEBRAL DISC PROTRUSION
     Dosage: 20MG + 30MG 2X DAILY 1 EVERY 12 HRS. ORALLY
     Route: 048
  24. OPANA [Suspect]
     Active Substance: OXYMORPHONE HYDROCHLORIDE
     Indication: INTERVERTEBRAL DISC DEGENERATION
     Dosage: 20MG + 30MG 2X DAILY 1 EVERY 12 HRS. ORALLY
     Route: 048
  25. ESTRA/NORETH [Concomitant]
  26. METHYLPHENIDATE. [Concomitant]
     Active Substance: METHYLPHENIDATE
  27. VITAMIN B12 [Concomitant]
     Active Substance: CYANOCOBALAMIN
  28. SOMA [Concomitant]
     Active Substance: CARISOPRODOL
  29. OPANA [Suspect]
     Active Substance: OXYMORPHONE HYDROCHLORIDE
     Indication: SCOLIOSIS
     Dosage: 20MG + 30MG 2X DAILY 1 EVERY 12 HRS. ORALLY
     Route: 048
  30. LYRICA [Concomitant]
     Active Substance: PREGABALIN
  31. PROTONIX [Concomitant]
     Active Substance: PANTOPRAZOLE SODIUM
  32. ZYRTEC [Suspect]
     Active Substance: CETIRIZINE HYDROCHLORIDE
  33. RANITIDINE. [Concomitant]
     Active Substance: RANITIDINE

REACTIONS (12)
  - Amnesia [None]
  - Drug resistance [None]
  - Impaired driving ability [None]
  - Blood alcohol increased [None]
  - Drug tolerance [None]
  - Imprisonment [None]
  - Coma [None]
  - Contusion [None]
  - Hepatic enzyme increased [None]
  - Unevaluable event [None]
  - Memory impairment [None]
  - Disturbance in attention [None]
